FAERS Safety Report 13255396 (Version 4)
Quarter: 2017Q1

REPORT INFORMATION
  Report Type: Spontaneous
  Country: US (occurrence: US)
  Receive Date: 20170221
  Receipt Date: 20170323
  Transmission Date: 20170428
  Serious: Yes (Hospitalization, Disabling, Other)
  Sender: FDA-Public Use
  Company Number: US-RECKITT BENCKISER HEALTHCARE INT LIMITED-RB-81823-2017

PATIENT
  Age: 4 Year
  Sex: Male

DRUGS (1)
  1. CHILDRENS MUCINEX MINI-MELTS COUGH [Suspect]
     Active Substance: DEXTROMETHORPHAN HYDROBROMIDE\GUAIFENESIN
     Indication: COUGH
     Dosage: 2 PACKETS-CHILD SPIT OUT FIRST
     Route: 048
     Dates: start: 20161130, end: 20161130

REACTIONS (13)
  - C-reactive protein increased [Unknown]
  - Encephalitis allergic [Unknown]
  - Brain oedema [Unknown]
  - Pharyngeal oedema [Recovering/Resolving]
  - Respiratory arrest [Recovered/Resolved]
  - Brain injury [Unknown]
  - Activities of daily living impaired [Unknown]
  - Product use issue [Unknown]
  - Unresponsive to stimuli [Unknown]
  - Blindness [Not Recovered/Not Resolved]
  - Corona virus infection [Unknown]
  - Speech disorder [Unknown]
  - Abasia [Not Recovered/Not Resolved]

NARRATIVE: CASE EVENT DATE: 2016
